FAERS Safety Report 6055945-6 (Version None)
Quarter: 2009Q1

REPORT INFORMATION
  Report Type: 
  Country: None (occurrence: None)
  Receive Date: 20090126
  Receipt Date: 20081209
  Transmission Date: 20090719
  Serious: Yes (Death)
  Sender: FDA-Public Use
  Company Number: 8041544

PATIENT
  Age: 18 Year
  Sex: Female

DRUGS (3)
  1. PREDNISOLONE [Suspect]
     Dosage: PO
     Route: 048
  2. VINCRISTINE [Suspect]
     Dosage: IV
     Route: 042
  3. CHEMOTHERAPY [Concomitant]

REACTIONS (15)
  - ANAEMIA [None]
  - BLISTER [None]
  - CLOSTRIDIUM DIFFICILE COLITIS [None]
  - CULTURE WOUND POSITIVE [None]
  - DISEASE PROGRESSION [None]
  - DRUG HYPERSENSITIVITY [None]
  - ENTEROCOCCAL INFECTION [None]
  - HYPOTENSION [None]
  - LIVER DISORDER [None]
  - MUCOSAL INFLAMMATION [None]
  - NEUTROPENIA [None]
  - SEPTIC SHOCK [None]
  - STAPHYLOCOCCAL SCALDED SKIN SYNDROME [None]
  - TACHYCARDIA [None]
  - THROMBOCYTOPENIA [None]
